FAERS Safety Report 20654877 (Version 1)
Quarter: 2022Q1

REPORT INFORMATION
  Report Type: Spontaneous
  Country: US (occurrence: None)
  Receive Date: 20220330
  Receipt Date: 20220330
  Transmission Date: 20220423
  Serious: No
  Sender: FDA-Public Use
  Company Number: None

PATIENT
  Age: 67 Year
  Sex: Female
  Weight: 77.56 kg

DRUGS (32)
  1. PROMACTA [Suspect]
     Active Substance: ELTROMBOPAG OLAMINE
     Indication: Non-Hodgkin^s lymphoma
     Dosage: FREQUENCY : DAILY;?
     Route: 048
  2. ALLOPURINOL [Suspect]
     Active Substance: ALLOPURINOL
  3. ALPRAZOLAM [Suspect]
     Active Substance: ALPRAZOLAM
  4. AMLODIPINE [Suspect]
     Active Substance: AMLODIPINE BESYLATE
  5. ATENOLOL [Suspect]
     Active Substance: ATENOLOL
  6. BIO-ACTIVE [Concomitant]
  7. BIOTIN [Concomitant]
     Active Substance: BIOTIN
  8. CALCIUM [Concomitant]
     Active Substance: CALCIUM
  9. COENZYME Q10 [Concomitant]
     Active Substance: DIETARY SUPPLEMENT\UBIDECARENONE
  10. EPIPEN [Concomitant]
     Active Substance: EPINEPHRINE
  11. VITAMIN D3 [Concomitant]
     Active Substance: CHOLECALCIFEROL
  12. FUROSEMIDE [Concomitant]
     Active Substance: FUROSEMIDE
  13. GABAPENTIN [Concomitant]
     Active Substance: GABAPENTIN
  14. IMBRUVICA [Concomitant]
     Active Substance: IBRUTINIB
  15. LEVOMEFOLIC ACID [Concomitant]
     Active Substance: LEVOMEFOLIC ACID
  16. LEVOTHYROXINE [Concomitant]
     Active Substance: LEVOTHYROXINE
  17. LEVSIN [Concomitant]
     Active Substance: HYOSCYAMINE SULFATE
  18. LEXAPRO [Concomitant]
     Active Substance: ESCITALOPRAM OXALATE
  19. MAGNESIUM CITRATE [Concomitant]
     Active Substance: MAGNESIUM CITRATE
  20. MULTIVTAMIN [Concomitant]
  21. NORCO [Concomitant]
     Active Substance: ACETAMINOPHEN\HYDROCODONE BITARTRATE
  22. OMEGA 3 [Concomitant]
     Active Substance: CAPSAICIN
  23. PRAVASTATIN [Concomitant]
     Active Substance: PRAVASTATIN
  24. PREDNISONE [Concomitant]
     Active Substance: PREDNISONE
  25. QUERCETIN [Concomitant]
     Active Substance: QUERCETIN
  26. REVLIMID [Concomitant]
     Active Substance: LENALIDOMIDE
  27. TACROLIMUS [Concomitant]
     Active Substance: TACROLIMUS
  28. VITAMIN B [Concomitant]
     Active Substance: VITAMIN B
  29. TRAMADOL [Concomitant]
     Active Substance: TRAMADOL
  30. VITAMIN C [Concomitant]
     Active Substance: ASCORBIC ACID
  31. ZINC [Concomitant]
     Active Substance: ZINC
  32. ZOFRAN [Concomitant]
     Active Substance: ONDANSETRON HYDROCHLORIDE

REACTIONS (4)
  - Platelet count decreased [None]
  - Diarrhoea [None]
  - Mouth ulceration [None]
  - Gastric disorder [None]
